FAERS Safety Report 7796263-5 (Version None)
Quarter: 2011Q4

REPORT INFORMATION
  Report Type: 
  Country: None (occurrence: None)
  Receive Date: 20111004
  Receipt Date: 20110928
  Transmission Date: 20120403
  Serious: Yes (Hospitalization, Other)
  Sender: FDA-Public Use
  Company Number: US-AMGEN-USASP2011050105

PATIENT
  Sex: Male

DRUGS (2)
  1. ENBREL [Suspect]
     Indication: PSORIASIS
  2. ENBREL [Suspect]
     Indication: PSORIATIC ARTHROPATHY
     Dosage: 50 MG, 2 TIMES/WK
     Dates: start: 20051002

REACTIONS (10)
  - OPEN WOUND [None]
  - GASTRITIS [None]
  - SCRATCH [None]
  - STRESS [None]
  - LUMBAR SPINAL STENOSIS [None]
  - DERMATITIS CONTACT [None]
  - ULCER [None]
  - PSORIASIS [None]
  - IMPAIRED HEALING [None]
  - SKIN ATROPHY [None]
